FAERS Safety Report 10010341 (Version 1)
Quarter: 2014Q1

REPORT INFORMATION
  Report Type: Spontaneous
  Country: JP (occurrence: JP)
  Receive Date: 20140314
  Receipt Date: 20140314
  Transmission Date: 20141002
  Serious: Yes (Hospitalization)
  Sender: FDA-Public Use
  Company Number: JP-ACCORD-022416

PATIENT
  Age: 68 Year
  Sex: Male

DRUGS (3)
  1. TACROLIMUS [Suspect]
     Indication: PRODUCT USED FOR UNKNOWN INDICATION
  2. ADALIMUMAB [Suspect]
     Indication: PRODUCT USED FOR UNKNOWN INDICATION
     Dosage: WAS ADMINISTERED 3 TIMES APPROXIMATELY EVERY 2 WEEKS.
  3. PREDNISOLONE [Concomitant]
     Indication: PRODUCT USED FOR UNKNOWN INDICATION
     Dosage: GRADUALLY TAPERED TO 10 MG/DAY THEN DECREASED THE DOSE TO 5 MG/DAY, DUE TO THE DETERIORATION OF RP S

REACTIONS (3)
  - Lymphadenopathy mediastinal [Recovering/Resolving]
  - Subcutaneous abscess [Recovering/Resolving]
  - Mycobacterium avium complex infection [Recovering/Resolving]
